FAERS Safety Report 6806564-2 (Version None)
Quarter: 2010Q2

REPORT INFORMATION
  Report Type: 
  Country: None (occurrence: None)
  Receive Date: 20100629
  Receipt Date: 20080318
  Transmission Date: 20101027
  Serious: No
  Sender: FDA-Public Use
  Company Number: US-PFIZER INC-2008025161

PATIENT

DRUGS (2)
  1. MEDROL [Suspect]
     Indication: POISONING
  2. ALL OTHER THERAPEUTIC PRODUCTS [Concomitant]

REACTIONS (2)
  - UNEVALUABLE EVENT [None]
  - WEIGHT DECREASED [None]
